FAERS Safety Report 5688247-8 (Version None)
Quarter: 2008Q1

REPORT INFORMATION
  Report Type: 
  Country: None (occurrence: None)
  Receive Date: 20080331
  Receipt Date: 20080324
  Transmission Date: 20080703
  Serious: Yes (Other)
  Sender: FDA-Public Use
  Company Number: US-JNJFOC-20071203113

PATIENT
  Sex: Female
  Weight: 109.32 kg

DRUGS (5)
  1. REMICADE [Suspect]
     Dosage: 5 VIALS
     Route: 042
  2. REMICADE [Suspect]
     Indication: RHEUMATOID ARTHRITIS
     Dosage: 5 VIALS
     Route: 042
  3. METHOTREXATE [Concomitant]
     Dosage: 6 MONTHS
  4. NSAIDS [Concomitant]
     Dosage: 6 MONTHS
  5. PREDNISONE TAB [Concomitant]

REACTIONS (2)
  - BACK DISORDER [None]
  - LUNG DISORDER [None]
